FAERS Safety Report 24237843 (Version 5)
Quarter: 2025Q1

REPORT INFORMATION
  Report Type: Spontaneous
  Country: US (occurrence: US)
  Receive Date: 20240822
  Receipt Date: 20250113
  Transmission Date: 20250409
  Serious: No
  Sender: BRISTOL-MYERS SQUIBB COMPANY
  Company Number: US-BRISTOL-MYERS SQUIBB COMPANY-2024-131755

PATIENT
  Age: 76 Year
  Sex: Male

DRUGS (4)
  1. REVLIMID [Suspect]
     Active Substance: LENALIDOMIDE
     Indication: Plasma cell myeloma in remission
     Route: 048
  2. REVLIMID [Suspect]
     Active Substance: LENALIDOMIDE
     Route: 048
  3. REVLIMID [Suspect]
     Active Substance: LENALIDOMIDE
     Route: 048
  4. REVLIMID [Suspect]
     Active Substance: LENALIDOMIDE
     Route: 048

REACTIONS (8)
  - Tooth infection [Recovering/Resolving]
  - Cold-stimulus headache [Not Recovered/Not Resolved]
  - Constipation [Recovered/Resolved]
  - Product prescribing issue [Unknown]
  - Back pain [Not Recovered/Not Resolved]
  - Therapy interrupted [Unknown]
  - Axillary mass [Recovering/Resolving]
  - Hypotension [Not Recovered/Not Resolved]
